FAERS Safety Report 10242766 (Version 1)
Quarter: 2014Q2

REPORT INFORMATION
  Report Type: Spontaneous
  Country: US (occurrence: US)
  Receive Date: 20140617
  Receipt Date: 20140617
  Transmission Date: 20141212
  Serious: No
  Sender: FDA-Public Use
  Company Number: US-009507513-1406USA002381

PATIENT
  Age: 79 Year
  Sex: Male

DRUGS (11)
  1. TRUSOPT [Suspect]
     Indication: GLAUCOMA
     Route: 047
  2. ASPIRIN [Concomitant]
  3. ACETAMINOPHEN [Concomitant]
  4. LEVOTHYROXINE SODIUM [Concomitant]
  5. OMEPRAZOLE [Concomitant]
  6. TIOTROPIUM BROMIDE [Concomitant]
  7. MOMETASONE FUROATE [Concomitant]
  8. ALBUTEROL [Concomitant]
  9. SALMETEROL [Concomitant]
     Dosage: INHALERS
  10. BRIMONIDINE TARTRATE [Concomitant]
     Indication: GLAUCOMA
  11. PREDNISONE [Concomitant]

REACTIONS (1)
  - Dysgeusia [Recovered/Resolved]
